FAERS Safety Report 8326424-8 (Version None)
Quarter: 2012Q2

REPORT INFORMATION
  Report Type: 
  Country: None (occurrence: None)
  Receive Date: 20120501
  Receipt Date: 20120427
  Transmission Date: 20120825
  Serious: Yes (Life-Threatening, Hospitalization)
  Sender: FDA-Public Use
  Company Number: US-ROCHE-1059755

PATIENT
  Sex: Male
  Weight: 78 kg

DRUGS (2)
  1. VEMURAFENIB [Suspect]
     Indication: MALIGNANT MELANOMA
  2. VEMURAFENIB [Suspect]
     Indication: NEOPLASM
     Dosage: 38 CYCLES RECEIVED
     Route: 048
     Dates: start: 20120216, end: 20120314

REACTIONS (2)
  - DYSPNOEA [None]
  - TREATMENT RELATED SECONDARY MALIGNANCY [None]
